FAERS Safety Report 16354600 (Version 1)
Quarter: 2019Q2

REPORT INFORMATION
  Report Type: Spontaneous
  Country: NL (occurrence: NL)
  Receive Date: 20190524
  Receipt Date: 20190524
  Transmission Date: 20190711
  Serious: Yes (Other)
  Sender: FDA-Public Use
  Company Number: NL-GLAXOSMITHKLINE-NL2017191524

PATIENT
  Age: 39 Year
  Sex: Female
  Weight: 85 kg

DRUGS (2)
  1. FLUTICASONE. [Suspect]
     Active Substance: FLUTICASONE
     Indication: DEAFNESS TRANSITORY
  2. FLUTICASONE. [Suspect]
     Active Substance: FLUTICASONE
     Indication: EUSTACHIAN TUBE OBSTRUCTION
     Dosage: 100 ?G, QD (1 TIMES DAILY 2 INHALATIONS)
     Route: 045
     Dates: start: 20171108, end: 20171109

REACTIONS (2)
  - Syncope [Recovering/Resolving]
  - Balance disorder [Recovering/Resolving]

NARRATIVE: CASE EVENT DATE: 20171108
